FAERS Safety Report 6769749-X (Version None)
Quarter: 2010Q2

REPORT INFORMATION
  Report Type: 
  Country: None (occurrence: None)
  Receive Date: 20100615
  Receipt Date: 20100607
  Transmission Date: 20101027
  Serious: Yes (Death)
  Sender: FDA-Public Use
  Company Number: ES-ROCHE-708221

PATIENT
  Age: 58 Year
  Sex: Female

DRUGS (7)
  1. AVASTIN [Suspect]
     Indication: DRUG USE FOR UNKNOWN INDICATION
     Route: 065
  2. TARCEVA [Suspect]
     Indication: DRUG USE FOR UNKNOWN INDICATION
     Route: 065
  3. TEMOZOLOMIDE [Suspect]
     Indication: GLIOBLASTOMA MULTIFORME
     Dosage: 7 DAYS PER WEEK
     Route: 065
  4. TEMOZOLOMIDE [Suspect]
     Dosage: FOR FIRST CYCLE
     Route: 065
  5. TEMOZOLOMIDE [Suspect]
     Dosage: DOSE INCREASED
     Route: 065
  6. TEMOZOLOMIDE [Suspect]
     Dosage: 7 DAYS ON 7 DAYS OFF
     Route: 065
  7. IRINOTECAN [Suspect]
     Indication: DRUG USE FOR UNKNOWN INDICATION
     Route: 065

REACTIONS (3)
  - DERMATITIS ACNEIFORM [None]
  - DIARRHOEA [None]
  - DISEASE PROGRESSION [None]
